FAERS Safety Report 8421981-5 (Version None)
Quarter: 2012Q2

REPORT INFORMATION
  Report Type: 
  Country: None (occurrence: None)
  Receive Date: 20120323
  Receipt Date: 20111214
  Transmission Date: 20120825
  Serious: Yes (Other)
  Sender: FDA-Public Use
  Company Number: 163-21880-11122092

PATIENT
  Age: 72 Year
  Sex: Male
  Weight: 94.3482 kg

DRUGS (4)
  1. REVLIMID [Suspect]
     Indication: MULTIPLE MYELOMA
     Dosage: 25 MG, QD X 14 DAYS, PO
     Route: 048
     Dates: start: 20110810
  2. ATENOLOL [Concomitant]
  3. WARFARIN SODIUM [Concomitant]
  4. FLUDROCORTISONE ACETATE [Concomitant]

REACTIONS (4)
  - LOSS OF CONSCIOUSNESS [None]
  - PAIN IN EXTREMITY [None]
  - HYPOTENSION [None]
  - THROMBOSIS [None]
